FAERS Safety Report 5708764-1 (Version None)
Quarter: 2008Q2

REPORT INFORMATION
  Report Type: 
  Country: None (occurrence: None)
  Receive Date: 20080417
  Receipt Date: 20080407
  Transmission Date: 20081010
  Serious: Yes (Hospitalization)
  Sender: FDA-Public Use
  Company Number: US-ABBOTT-08P-163-0445792-00

PATIENT
  Sex: Male
  Weight: 113.5 kg

DRUGS (4)
  1. DEPAKOTE [Suspect]
     Indication: AFFECTIVE DISORDER
     Route: 048
     Dates: end: 20070309
  2. DEPAKENE [Suspect]
     Indication: AFFECTIVE DISORDER
     Route: 048
     Dates: start: 20070309, end: 20080201
  3. DEPAKOTE ER [Suspect]
     Indication: AFFECTIVE DISORDER
     Route: 048
     Dates: start: 20080201
  4. UNSPECIFIED MEDICATIONS [Concomitant]
     Indication: DRUG USE FOR UNKNOWN INDICATION

REACTIONS (2)
  - BLINDNESS HYSTERICAL [None]
  - CONVULSION [None]
